FAERS Safety Report 5660688-4 (Version None)
Quarter: 2008Q1

REPORT INFORMATION
  Report Type: 
  Country: None (occurrence: None)
  Receive Date: 20080311
  Receipt Date: 20080303
  Transmission Date: 20080703
  Serious: Yes (Hospitalization)
  Sender: FDA-Public Use
  Company Number: KR-BRISTOL-MYERS SQUIBB COMPANY-14099857

PATIENT
  Age: 55 Year
  Sex: Male

DRUGS (4)
  1. ENTECAVIR [Suspect]
     Route: 048
     Dates: start: 20080115
  2. MYCOPHENOLATE MOFETIL [Suspect]
     Dates: start: 20080116, end: 20080303
  3. TACROLIMUS [Suspect]
     Dates: start: 20080120
  4. METHYLPREDNISOLONE [Concomitant]
     Dates: start: 20080123

REACTIONS (2)
  - NAUSEA [None]
  - VOMITING [None]
